FAERS Safety Report 6381863-X (Version None)
Quarter: 2009Q3

REPORT INFORMATION
  Report Type: 
  Country: None (occurrence: None)
  Receive Date: 20090925
  Receipt Date: 20090918
  Transmission Date: 20100115
  Serious: Yes (Hospitalization)
  Sender: FDA-Public Use
  Company Number: 2006-144661-NL

PATIENT
  Age: 25 Year
  Sex: Female
  Weight: 83.9154 kg

DRUGS (9)
  1. NUVARING [Suspect]
     Indication: CONTRACEPTION
     Dosage: 1 DF; QM; VAG
     Route: 067
     Dates: start: 20060126, end: 20060525
  2. NOREL SR [Concomitant]
  3. AMOXICILLIN [Concomitant]
  4. APAP W/ CODEINE [Concomitant]
  5. AZITHROMYCIN [Concomitant]
  6. CIPRODEX [Concomitant]
  7. PROPRANOLOL [Concomitant]
  8. TYLENOL W/ CODEINE NO. 3 [Concomitant]
  9. NEURONTIN [Concomitant]

REACTIONS (28)
  - AMENORRHOEA [None]
  - AMNESIA [None]
  - ANGINA PECTORIS [None]
  - ARRHYTHMIA [None]
  - BLOOD DISORDER [None]
  - CARDIOVASCULAR DISORDER [None]
  - CEREBRAL INFARCTION [None]
  - CEREBRAL THROMBOSIS [None]
  - CEREBROVASCULAR ACCIDENT [None]
  - DEEP VEIN THROMBOSIS [None]
  - EAR INFECTION [None]
  - EAR PAIN [None]
  - GENERAL PHYSICAL CONDITION ABNORMAL [None]
  - HAEMORRHAGIC DISORDER [None]
  - HEADACHE [None]
  - HYPERCOAGULATION [None]
  - HYPERTENSION [None]
  - HYPOACUSIS [None]
  - LUMBAR PUNCTURE ABNORMAL [None]
  - MIGRAINE [None]
  - MOTOR DYSFUNCTION [None]
  - MULTIPLE ALLERGIES [None]
  - PERIPHERAL VASCULAR DISORDER [None]
  - PHARYNGITIS [None]
  - SUBARACHNOID HAEMORRHAGE [None]
  - TRANSVERSE SINUS THROMBOSIS [None]
  - TREATMENT NONCOMPLIANCE [None]
  - VISION BLURRED [None]
